FAERS Safety Report 19073745 (Version 1)
Quarter: 2021Q1

REPORT INFORMATION
  Report Type: Other
  Country: US (occurrence: GB)
  Receive Date: 20210330
  Receipt Date: 20210330
  Transmission Date: 20210420
  Serious: Yes (Death, Other)
  Sender: FDA-Public Use
  Company Number: GB-BRECKENRIDGE PHARMACEUTICAL, INC.-2108613

PATIENT
  Age: 78 Year
  Sex: Female

DRUGS (14)
  1. ASPIRIN. [Concomitant]
     Active Substance: ASPIRIN
  2. VENTOLIN HFA [Concomitant]
     Active Substance: ALBUTEROL SULFATE
  3. VITAMIN B12 [Concomitant]
     Active Substance: CYANOCOBALAMIN
  4. OMEPRAZOLE. [Suspect]
     Active Substance: OMEPRAZOLE
  5. CALCIUM AND VITAMIN D [Concomitant]
     Active Substance: CALCIUM\VITAMIN D
  6. FOSTAIR [Concomitant]
     Active Substance: BECLOMETHASONE\FORMOTEROL
  7. HYDROXOCOBALAMINUM [Concomitant]
  8. DOMPERIDONE [Suspect]
     Active Substance: DOMPERIDONE
  9. ADCAL?D3 [Concomitant]
     Active Substance: CALCIUM CARBONATE\CHOLECALCIFEROL
  10. RAMIPRIL. [Concomitant]
     Active Substance: RAMIPRIL
  11. SALBUTAMOL [Concomitant]
     Active Substance: ALBUTEROL
  12. CARBOCYSTEINE [Concomitant]
     Active Substance: CARBOCYSTEINE
  13. FRUSEMIDE [Concomitant]
     Active Substance: FUROSEMIDE
  14. ATORVASTATIN CALCIUM. [Concomitant]
     Active Substance: ATORVASTATIN CALCIUM

REACTIONS (6)
  - Death [None]
  - Ventricular fibrillation [None]
  - Atrial fibrillation [None]
  - Myocardial infarction [None]
  - Unresponsive to stimuli [None]
  - Hypomagnesaemia [None]
